FAERS Safety Report 8885913 (Version 2)
Quarter: 2012Q4

REPORT INFORMATION
  Report Type: 
  Country: US (occurrence: US)
  Receive Date: 20121105
  Receipt Date: 20121212
  Transmission Date: 20130627
  Serious: Yes (Other)
  Sender: FDA-Public Use
  Company Number: US-PFIZER INC-2012273909

PATIENT
  Sex: Female

DRUGS (3)
  1. GEODON [Suspect]
     Indication: BIPOLAR DISORDER
     Dosage: UNK
  2. SEROQUEL [Suspect]
     Indication: BIPOLAR DISORDER
     Dosage: UNK
  3. SAPHRIS [Suspect]
     Indication: BIPOLAR DISORDER
     Dosage: UNK
     Route: 060

REACTIONS (2)
  - Tardive dyskinesia [Unknown]
  - Tremor [Unknown]
